FAERS Safety Report 23631457 (Version 2)
Quarter: 2024Q2

REPORT INFORMATION
  Report Type: Spontaneous
  Country: US (occurrence: US)
  Receive Date: 20240314
  Receipt Date: 20240501
  Transmission Date: 20240716
  Serious: No
  Sender: FDA-Public Use
  Company Number: US-PFIZER INC-PV202400035161

PATIENT
  Age: 86 Year
  Sex: Female
  Weight: 79.819 kg

DRUGS (2)
  1. IBRANCE [Suspect]
     Active Substance: PALBOCICLIB
     Indication: Breast cancer
     Dosage: 125 MG, CYCLIC (3 WEEKS ON, 1 WEEK OFF)
     Dates: start: 20240308
  2. LETROZOLE [Concomitant]
     Active Substance: LETROZOLE
     Dosage: UNK
     Dates: start: 20240227

REACTIONS (2)
  - Fall [Recovered/Resolved]
  - Joint swelling [Recovered/Resolved]
